FAERS Safety Report 17006530 (Version 1)
Quarter: 2019Q4

REPORT INFORMATION
  Report Type: Spontaneous
  Country: US (occurrence: US)
  Receive Date: 20191106
  Receipt Date: 20191106
  Transmission Date: 20200122
  Serious: Yes (Hospitalization)
  Sender: FDA-Public Use
  Company Number: None

PATIENT
  Age: 57 Year
  Sex: Female
  Weight: 95.85 kg

DRUGS (10)
  1. PHENYOTION XD 100MG CAPS [Suspect]
     Active Substance: PHENYTOIN
     Indication: SEIZURE
     Dosage: ?          QUANTITY:1 CAPSULE(S);?
     Route: 048
     Dates: start: 20191003
  2. LEVOTHYROXINE. [Concomitant]
     Active Substance: LEVOTHYROXINE
  3. TIZANIDINE. [Concomitant]
     Active Substance: TIZANIDINE
  4. WARFARIN [Concomitant]
     Active Substance: WARFARIN
  5. PHENYTOIN XD 200 MG CAPS [Suspect]
     Active Substance: PHENYTOIN
     Indication: SEIZURE
     Dosage: ?          QUANTITY:1 CAPSULE(S);?
     Route: 048
     Dates: start: 20191003
  6. MIRTAZAPINE. [Concomitant]
     Active Substance: MIRTAZAPINE
  7. VITAMIN D3 [Concomitant]
     Active Substance: CHOLECALCIFEROL
  8. LISINOPRIL. [Concomitant]
     Active Substance: LISINOPRIL
  9. SIMVASTATIN. [Concomitant]
     Active Substance: SIMVASTATIN
  10. ZOLPIDEM [Concomitant]
     Active Substance: ZOLPIDEM TARTRATE

REACTIONS (6)
  - Rash [None]
  - Oropharyngeal pain [None]
  - Lymphadenopathy [None]
  - Anxiety [None]
  - Agitation [None]
  - Emotional distress [None]

NARRATIVE: CASE EVENT DATE: 20191008
